FAERS Safety Report 9461484 (Version 1)
Quarter: 2013Q3

REPORT INFORMATION
  Report Type: Spontaneous
  Country: US (occurrence: US)
  Receive Date: 20130816
  Receipt Date: 20130816
  Transmission Date: 20140515
  Serious: Yes (Death, Other)
  Sender: FDA-Public Use
  Company Number: PHEH2012US010897

PATIENT
  Sex: Female

DRUGS (1)
  1. EXELON PATCH [Suspect]
     Dosage: 4.6 MG, UNK
     Route: 062

REACTIONS (5)
  - Death [Fatal]
  - Upper limb fracture [Unknown]
  - Drug administration error [Unknown]
  - Somnolence [Unknown]
  - Hallucination [Unknown]
